FAERS Safety Report 24904183 (Version 1)
Quarter: 2025Q1

REPORT INFORMATION
  Report Type: Spontaneous
  Country: CA (occurrence: CA)
  Receive Date: 20250130
  Receipt Date: 20250130
  Transmission Date: 20250409
  Serious: Yes (Other)
  Sender: CSL BEHRING
  Company Number: CA-BEH-2025193445

PATIENT
  Age: 67 Year
  Sex: Female
  Weight: 79 kg

DRUGS (7)
  1. HUMAN IMMUNOGLOBULIN G [Suspect]
     Active Substance: HUMAN IMMUNOGLOBULIN G
     Indication: Secondary immunodeficiency
     Dosage: 10 G, QW (1 EVERY 1 WEEKS)
     Route: 058
  2. HUMAN IMMUNOGLOBULIN G [Suspect]
     Active Substance: HUMAN IMMUNOGLOBULIN G
     Dosage: 10 G, QW (1 EVERY 1 WEEKS)
     Route: 058
  3. HUMAN IMMUNOGLOBULIN G [Suspect]
     Active Substance: HUMAN IMMUNOGLOBULIN G
     Dosage: 10 G, QW (1 EVERY 1 WEEKS)
     Route: 058
  4. CALCIUM [Concomitant]
     Active Substance: CALCIUM
     Indication: Product used for unknown indication
     Route: 065
  5. IRON [Concomitant]
     Active Substance: IRON
     Indication: Product used for unknown indication
     Route: 065
  6. PROLIA [Concomitant]
     Active Substance: DENOSUMAB
     Indication: Product used for unknown indication
     Route: 065
  7. VITAMIN D [Concomitant]
     Active Substance: VITAMIN D NOS
     Indication: Product used for unknown indication

REACTIONS (13)
  - Somnolence [Recovering/Resolving]
  - Cystitis [Recovering/Resolving]
  - Device related infection [Recovering/Resolving]
  - Dysuria [Recovering/Resolving]
  - Escherichia bacteraemia [Recovering/Resolving]
  - Fatigue [Recovering/Resolving]
  - Frustration tolerance decreased [Recovering/Resolving]
  - Illness [Recovering/Resolving]
  - Inappropriate schedule of product administration [Recovering/Resolving]
  - Nausea [Recovering/Resolving]
  - Neoplasm malignant [Recovering/Resolving]
  - Pollakiuria [Recovering/Resolving]
  - Off label use [Unknown]
